FAERS Safety Report 7496437-7 (Version None)
Quarter: 2011Q2

REPORT INFORMATION
  Report Type: 
  Country: None (occurrence: None)
  Receive Date: 20110523
  Receipt Date: 20110520
  Transmission Date: 20111010
  Serious: Yes (Death, Hospitalization, Other)
  Sender: FDA-Public Use
  Company Number: PHHO2011RO06032

PATIENT
  Sex: Female
  Weight: 53 kg

DRUGS (2)
  1. TASIGNA [Suspect]
     Indication: CHRONIC MYELOID LEUKAEMIA
     Dosage: 300 MG, BID
     Route: 048
     Dates: start: 20101229, end: 20110329
  2. HYDROXYUREA [Concomitant]

REACTIONS (3)
  - CARDIO-RESPIRATORY ARREST [None]
  - LEUKOPENIA [None]
  - PNEUMONIA [None]
